FAERS Safety Report 12431717 (Version 1)
Quarter: 2016Q2

REPORT INFORMATION
  Report Type: Spontaneous
  Country: US (occurrence: None)
  Receive Date: 20160602
  Receipt Date: 20160602
  Transmission Date: 20160815
  Serious: Yes (Disabling)
  Sender: FDA-Public Use
  Company Number: None

PATIENT
  Age: 74 Year
  Sex: Female
  Weight: 63.5 kg

DRUGS (6)
  1. VIBERZI [Suspect]
     Active Substance: ELUXADOLINE
     Indication: DIARRHOEA
     Route: 048
     Dates: start: 20160511, end: 20160530
  2. SIMVISTATIN [Concomitant]
     Active Substance: SIMVASTATIN
  3. COENZYME Q10 [Concomitant]
     Active Substance: UBIDECARENONE
  4. PLAVIX [Concomitant]
     Active Substance: CLOPIDOGREL BISULFATE
  5. METOPROLOL SUCCINATE. [Concomitant]
     Active Substance: METOPROLOL SUCCINATE
  6. ASPIRIN. [Concomitant]
     Active Substance: ASPIRIN

REACTIONS (5)
  - Nausea [None]
  - Diarrhoea [None]
  - Constipation [None]
  - Abdominal pain [None]
  - Gastrointestinal pain [None]

NARRATIVE: CASE EVENT DATE: 20160530
